FAERS Safety Report 7482680-X (Version None)
Quarter: 2011Q2

REPORT INFORMATION
  Report Type: 
  Country: None (occurrence: None)
  Receive Date: 20110516
  Receipt Date: 20110512
  Transmission Date: 20111010
  Serious: Yes (Death, Hospitalization, Other)
  Sender: FDA-Public Use
  Company Number: CR-ABBOTT-11P-039-0707825-00

PATIENT
  Age: 63 Year
  Sex: Female

DRUGS (1)
  1. HUMIRA [Suspect]
     Indication: RHEUMATOID ARTHRITIS
     Route: 058
     Dates: start: 20100201, end: 20100701

REACTIONS (7)
  - CONTUSION [None]
  - URINARY TRACT INFECTION [None]
  - FEBRILE NEUTROPENIA [None]
  - APLASTIC ANAEMIA [None]
  - HAEMORRHAGE [None]
  - SEPTIC SHOCK [None]
  - GINGIVAL BLEEDING [None]
